FAERS Safety Report 6829811-X (Version None)
Quarter: 2010Q3

REPORT INFORMATION
  Report Type: 
  Country: None (occurrence: None)
  Receive Date: 20100706
  Receipt Date: 20100621
  Transmission Date: 20110219
  Serious: Yes (Other)
  Sender: FDA-Public Use
  Company Number: B0663366A

PATIENT
  Sex: 0

DRUGS (8)
  1. LEVETIRACETAM TABLET (GENERIC) (LEVETIRACETAM) [Suspect]
     Indication: HUNTINGTON'S DISEASE
     Dosage: ORAL
  2. PAROXETINE HCL [Suspect]
  3. DONEPEZIL HCL [Suspect]
  4. TRAZODONE HCL [Suspect]
  5. FUROSEMIDE [Suspect]
  6. GABAPENTIN [Suspect]
  7. OLANZAPINE [Suspect]
  8. OXYBUTYNIN (FORMULATION UNKNOWN) (OXYBUTYNIN) [Suspect]

REACTIONS (2)
  - DRUG INTERACTION [None]
  - PARKINSONISM [None]
